FAERS Safety Report 7076126-3 (Version None)
Quarter: 2010Q4

REPORT INFORMATION
  Report Type: 
  Country: None (occurrence: None)
  Receive Date: 20101021
  Receipt Date: 20101008
  Transmission Date: 20110411
  Serious: Yes (Other)
  Sender: FDA-Public Use
  Company Number: 2010MA003508

PATIENT
  Age: 60 Year
  Sex: Male

DRUGS (6)
  1. FEVERALL [Suspect]
     Indication: PAIN
     Dosage: 1 GM;QID;IV
     Route: 042
     Dates: start: 20100423, end: 20100518
  2. FLOXACILLIN SODIUM [Suspect]
     Indication: STAPHYLOCOCCAL SEPSIS
     Dosage: 2 GM;QID;IV
     Route: 042
     Dates: start: 20100423, end: 20100518
  3. LISINOPRIL [Concomitant]
  4. AMLODIPINE [Concomitant]
  5. ACETYLSALICYLIC ACID SRT [Concomitant]
  6. IPRATROPIUM BROMIDE [Concomitant]

REACTIONS (3)
  - MALNUTRITION [None]
  - METABOLIC ACIDOSIS [None]
  - RENAL DISORDER [None]
